FAERS Safety Report 13176382 (Version 1)
Quarter: 2017Q1

REPORT INFORMATION
  Report Type: Spontaneous
  Country: US (occurrence: US)
  Receive Date: 20170201
  Receipt Date: 20170201
  Transmission Date: 20170428
  Serious: No
  Sender: FDA-Public Use
  Company Number: US-PFIZER INC-2017033544

PATIENT
  Age: 44 Year
  Sex: Female

DRUGS (2)
  1. LYRICA [Suspect]
     Active Substance: PREGABALIN
     Dosage: 300 MG, (6 CAPSULES TWO TIMES A DAY)
  2. LYRICA [Suspect]
     Active Substance: PREGABALIN
     Dosage: 250 MG, 2X/DAY

REACTIONS (4)
  - Pain of skin [Unknown]
  - Intentional product misuse [Unknown]
  - Skin burning sensation [Unknown]
  - Pain in extremity [Unknown]
